FAERS Safety Report 9883096 (Version 1)
Quarter: 2014Q1

REPORT INFORMATION
  Report Type: Spontaneous
  Country: AT (occurrence: AT)
  Receive Date: 20140208
  Receipt Date: 20140208
  Transmission Date: 20141002
  Serious: Yes (Other)
  Sender: FDA-Public Use
  Company Number: AT-ROCHE-1343460

PATIENT
  Age: 66 Year
  Sex: Female

DRUGS (1)
  1. MABTHERA [Suspect]
     Indication: PRODUCT USED FOR UNKNOWN INDICATION
     Dosage: ONE HALF OF 1 DOSE ADMINISTERED
     Route: 042
     Dates: start: 20131219, end: 20131219

REACTIONS (2)
  - Parotid gland enlargement [Recovered/Resolved]
  - Salivary gland enlargement [Recovered/Resolved]
